FAERS Safety Report 10208211 (Version 2)
Quarter: 2014Q3

REPORT INFORMATION
  Report Type: Report from Study
  Country: US (occurrence: US)
  Receive Date: 20140530
  Receipt Date: 20140714
  Transmission Date: 20150326
  Serious: Yes (Hospitalization)
  Sender: FDA-Public Use
  Company Number: US-SA-2014SA068154

PATIENT
  Age: 77 Year
  Sex: Female

DRUGS (19)
  1. POLYETHYLENE GLYCOL [Concomitant]
     Active Substance: POLYETHYLENE GLYCOLS
     Dosage: POWDER FOR RECONSTITUITION
     Dates: start: 20111031
  2. WARFARIN [Concomitant]
     Active Substance: WARFARIN
     Route: 048
     Dates: start: 20140129
  3. ALEVE [Concomitant]
     Active Substance: NAPROXEN SODIUM
     Indication: PAIN
     Dates: start: 20140318
  4. ACYCLOVIR. [Concomitant]
     Active Substance: ACYCLOVIR
     Dosage: FOR PREVENTION AND TID PRN
     Route: 048
     Dates: start: 20110718
  5. METOCLOPRAMIDE. [Concomitant]
     Active Substance: METOCLOPRAMIDE
     Dosage: FOUR TIMES A DAY BEFORE MEALS AND AT BEDTIME AS NEEDED.
     Route: 048
     Dates: start: 20140318
  6. LASIX [Concomitant]
     Active Substance: FUROSEMIDE
     Dosage: IN MORNING
     Route: 048
     Dates: start: 20111031
  7. ASPIRIN. [Concomitant]
     Active Substance: ASPIRIN
     Route: 048
     Dates: start: 20111031
  8. METFORMIN [Concomitant]
     Active Substance: METFORMIN HYDROCHLORIDE
     Route: 048
     Dates: start: 20140129
  9. ATORVASTATIN [Concomitant]
     Active Substance: ATORVASTATIN
     Dosage: AT BEDTIME
     Route: 048
     Dates: start: 20140129
  10. OMEPRAZOLE. [Concomitant]
     Active Substance: OMEPRAZOLE
     Route: 048
     Dates: start: 20140318
  11. LOSARTAN [Concomitant]
     Active Substance: LOSARTAN
     Route: 048
     Dates: start: 20140318
  12. LEVOTHYROXINE [Concomitant]
     Active Substance: LEVOTHYROXINE
     Route: 048
     Dates: start: 20140318
  13. TRAMADOL HYDROCHLORIDE. [Concomitant]
     Active Substance: TRAMADOL HYDROCHLORIDE
     Dosage: 1-3 TABLET EVERY 6 HOURS AS NEEDED.
     Route: 048
     Dates: start: 20140318
  14. FLUOXETINE [Concomitant]
     Active Substance: FLUOXETINE\FLUOXETINE HYDROCHLORIDE
     Route: 048
     Dates: start: 20111031
  15. PREMARIN VAGINAL [Concomitant]
     Active Substance: ESTROGENS, CONJUGATED
     Dosage: TOPICALLY PRN
     Route: 061
     Dates: start: 20140318
  16. LANTUS [Suspect]
     Active Substance: INSULIN GLARGINE
     Indication: DIABETES MELLITUS
     Dosage: DOSE:44 UNIT(S)
     Route: 065
  17. METOPROLOL SUCCINATE. [Concomitant]
     Active Substance: METOPROLOL SUCCINATE
     Route: 048
     Dates: start: 20111031
  18. BIOTIN [Concomitant]
     Active Substance: BIOTIN
     Route: 048
     Dates: start: 20140318
  19. PERCOCET [Concomitant]
     Active Substance: ACETAMINOPHEN\OXYCODONE HYDROCHLORIDE

REACTIONS (1)
  - Cardiac failure [Unknown]
